FAERS Safety Report 7462722-8 (Version None)
Quarter: 2011Q1

REPORT INFORMATION
  Report Type: 
  Country: None (occurrence: None)
  Receive Date: 20110302
  Receipt Date: 20101011
  Transmission Date: 20110831
  Serious: Yes (Hospitalization)
  Sender: FDA-Public Use
  Company Number: 163-21880-10031580

PATIENT
  Age: 78 Year
  Sex: Female
  Weight: 77.1115 kg

DRUGS (18)
  1. FOLIC ACID [Concomitant]
  2. LUNESTA [Concomitant]
  3. LIDOCAINE [Concomitant]
  4. CLONIDINE [Concomitant]
  5. OXYCONTIN [Concomitant]
  6. BENADRYL [Concomitant]
  7. PRILOSEC [Concomitant]
  8. MECLIZINE [Concomitant]
  9. LIDODERM DIS (LIDOCAINE) [Concomitant]
  10. ZOCOR [Concomitant]
  11. XANAX [Concomitant]
  12. LASIX [Concomitant]
  13. REVLIMID [Suspect]
     Indication: MYELODYSPLASTIC SYNDROME
     Dosage: 5 MG, DAILY ON DAYS 1-21, PO, 2 MG, 1 IN 1 D, PO
     Route: 048
     Dates: start: 20100201
  14. REVLIMID [Suspect]
     Indication: MYELODYSPLASTIC SYNDROME
     Dosage: 5 MG, DAILY ON DAYS 1-21, PO, 2 MG, 1 IN 1 D, PO
     Route: 048
     Dates: start: 20091101
  15. NYSTATIN [Concomitant]
  16. NEURONTIN [Concomitant]
  17. LEVOTHYROXINE SODIUM [Concomitant]
  18. ARANESP [Concomitant]

REACTIONS (5)
  - CHAPPED LIPS [None]
  - CHEILITIS [None]
  - RASH MACULAR [None]
  - OROPHARYNGEAL PAIN [None]
  - PLATELET COUNT DECREASED [None]
